FAERS Safety Report 8505707-2 (Version None)
Quarter: 2012Q3

REPORT INFORMATION
  Report Type: 
  Country: None (occurrence: None)
  Receive Date: 20120712
  Receipt Date: 20120702
  Transmission Date: 20120928
  Serious: No
  Sender: FDA-Public Use
  Company Number: DE-JNJFOC-20120407915

PATIENT
  Sex: Female
  Weight: 65 kg

DRUGS (8)
  1. SIMVASTATIN [Concomitant]
  2. RAMIPRIL [Concomitant]
  3. METFORMIN HCL [Concomitant]
  4. XARELTO [Suspect]
     Indication: CEREBROVASCULAR ACCIDENT PROPHYLAXIS
     Route: 048
  5. BISOPROLOL FUMARATE [Concomitant]
  6. XARELTO [Suspect]
     Indication: ATRIAL FIBRILLATION
     Route: 048
  7. APIDRA [Concomitant]
  8. LANTUS [Concomitant]

REACTIONS (1)
  - GENERALISED OEDEMA [None]
